FAERS Safety Report 10861255 (Version 2)
Quarter: 2015Q1

REPORT INFORMATION
  Report Type: Spontaneous
  Country: US (occurrence: US)
  Receive Date: 20150224
  Receipt Date: 20150327
  Transmission Date: 20150721
  Serious: Yes (Other)
  Sender: FDA-Public Use
  Company Number: US-BAYER-2015-026635

PATIENT
  Age: 25 Year
  Sex: Female

DRUGS (2)
  1. MIRENA [Suspect]
     Active Substance: LEVONORGESTREL
     Indication: CONTRACEPTION
     Dosage: 20 MCG/24HR, CONT
     Route: 015
     Dates: start: 2011, end: 20130218
  2. SEASONIQUE [Concomitant]
     Active Substance: ETHINYL ESTRADIOL\LEVONORGESTREL

REACTIONS (11)
  - Uterine perforation [None]
  - Injury [None]
  - Anxiety [None]
  - Genital haemorrhage [None]
  - Abdominal discomfort [None]
  - Device issue [None]
  - Depression [None]
  - Emotional distress [None]
  - Dyspareunia [None]
  - Pain [None]
  - Anger [None]

NARRATIVE: CASE EVENT DATE: 2013
